FAERS Safety Report 4862572-2 (Version None)
Quarter: 2005Q4

REPORT INFORMATION
  Report Type: 
  Country: None (occurrence: None)
  Receive Date: 20051221
  Receipt Date: 20051219
  Transmission Date: 20060501
  Serious: Yes (Other)
  Sender: FDA-Public Use
  Company Number: NL-GLAXOSMITHKLINE-B0404272A

PATIENT
  Age: 55 Year
  Sex: Male

DRUGS (2)
  1. PAROXETINE HCL [Suspect]
     Indication: DEPRESSION
     Dosage: 30MG PER DAY
     Dates: start: 20050906
  2. HUMALOG [Suspect]

REACTIONS (2)
  - DISTURBANCE IN ATTENTION [None]
  - DRUG INTERACTION [None]
